FAERS Safety Report 17129663 (Version 1)
Quarter: 2019Q4

REPORT INFORMATION
  Report Type: Spontaneous
  Country: FR (occurrence: FR)
  Receive Date: 20191209
  Receipt Date: 20191209
  Transmission Date: 20200122
  Serious: Yes (Death, Hospitalization, Other)
  Sender: FDA-Public Use
  Company Number: FR-ACTELION-A-CH2019-198974

PATIENT
  Age: 33 Year
  Sex: Female

DRUGS (5)
  1. CIRCADIN [Concomitant]
     Active Substance: MELATONIN
     Dosage: 2 MG, OD
  2. TRACLEER [Suspect]
     Active Substance: BOSENTAN
     Indication: PULMONARY ARTERIAL HYPERTENSION
     Dosage: 125 MG, BID
  3. ADCIRCA [Concomitant]
     Active Substance: TADALAFIL
     Dosage: 2 DF, OD
  4. ATORVASTATIN [Concomitant]
     Active Substance: ATORVASTATIN
     Dosage: 10 MG, OD
  5. LEVOTHYROX [Concomitant]
     Active Substance: LEVOTHYROXINE
     Dosage: 50 MCG, OD

REACTIONS (15)
  - Bladder catheterisation [Unknown]
  - Acute respiratory distress syndrome [Fatal]
  - Product use issue [Unknown]
  - Peripheral coldness [Unknown]
  - Oxygen saturation decreased [Unknown]
  - Cyanosis [Unknown]
  - Cardio-respiratory arrest [Fatal]
  - Pulmonary embolism [Unknown]
  - Electrocardiogram repolarisation abnormality [Unknown]
  - Renal failure [Fatal]
  - Right ventricular failure [Fatal]
  - Haemodynamic instability [Fatal]
  - Cardiac septal defect [Unknown]
  - Livedo reticularis [Unknown]
  - Hypotension [Unknown]

NARRATIVE: CASE EVENT DATE: 20191101
